FAERS Safety Report 8124039-8 (Version None)
Quarter: 2012Q1

REPORT INFORMATION
  Report Type: 
  Country: None (occurrence: None)
  Receive Date: 20120209
  Receipt Date: 20120203
  Transmission Date: 20120608
  Serious: No
  Sender: FDA-Public Use
  Company Number: US-PFIZER INC-2012033148

PATIENT
  Age: 80 Year
  Sex: Male

DRUGS (2)
  1. LIPITOR [Suspect]
     Dosage: UNK
  2. ATORVASTATIN CALCIUM [Suspect]
     Dosage: 40 MG, UNK

REACTIONS (2)
  - NECK PAIN [None]
  - MYALGIA [None]
